FAERS Safety Report 19268269 (Version 1)
Quarter: 2021Q2

REPORT INFORMATION
  Report Type: Spontaneous
  Country: US (occurrence: US)
  Receive Date: 20210518
  Receipt Date: 20210518
  Transmission Date: 20210717
  Serious: Yes (Other)
  Sender: FDA-Public Use
  Company Number: US-ELI_LILLY_AND_COMPANY-US202105007128

PATIENT
  Sex: Female

DRUGS (1)
  1. HUMALOG [Suspect]
     Active Substance: INSULIN LISPRO
     Indication: TYPE 1 DIABETES MELLITUS
     Dosage: UNK UNK, UNKNOWN
     Route: 065
     Dates: start: 1996

REACTIONS (5)
  - Neuropathy peripheral [Recovering/Resolving]
  - Spinal stenosis [Recovering/Resolving]
  - Barrett^s oesophagus [Recovering/Resolving]
  - Chronic obstructive pulmonary disease [Recovering/Resolving]
  - Intracranial aneurysm [Recovering/Resolving]
